FAERS Safety Report 8155397-6 (Version None)
Quarter: 2012Q1

REPORT INFORMATION
  Report Type: 
  Country: None (occurrence: None)
  Receive Date: 20120222
  Receipt Date: 20120210
  Transmission Date: 20120608
  Serious: Yes (Life-Threatening, Hospitalization)
  Sender: FDA-Public Use
  Company Number: DE-BRISTOL-MYERS SQUIBB COMPANY-15916521

PATIENT
  Age: 74 Year
  Sex: Male
  Weight: 68 kg

DRUGS (5)
  1. ERBITUX [Suspect]
     Indication: COLORECTAL CANCER METASTATIC
     Route: 042
     Dates: start: 20110110
  2. RANITIDINE HCL [Concomitant]
     Indication: PROPHYLAXIS
     Route: 042
     Dates: start: 20110110
  3. DEXAMETHASONE [Concomitant]
     Indication: ALLERGY PROPHYLAXIS
     Route: 048
     Dates: start: 20110110
  4. GRANISETRON [Concomitant]
     Indication: PROPHYLAXIS OF NAUSEA AND VOMITING
     Route: 048
     Dates: start: 20110110
  5. FENISTIL [Concomitant]
     Indication: ALLERGY PROPHYLAXIS
     Route: 042
     Dates: start: 20110110

REACTIONS (5)
  - CHILLS [None]
  - HYPERTENSIVE CRISIS [None]
  - HYPERGLYCAEMIA [None]
  - HYPERSENSITIVITY [None]
  - ASTHMA [None]
